FAERS Safety Report 24664642 (Version 2)
Quarter: 2024Q4

REPORT INFORMATION
  Report Type: Spontaneous
  Country: BR (occurrence: BR)
  Receive Date: 20241126
  Receipt Date: 20241221
  Transmission Date: 20250114
  Serious: Yes (Death, Hospitalization)
  Sender: BAYER HEALTHCARE PHARMACEUTICALS INC.
  Company Number: BR-BAYER-2024A166108

PATIENT
  Age: 81 Year
  Sex: Male

DRUGS (5)
  1. STIVARGA [Suspect]
     Active Substance: REGORAFENIB MONOHYDRATE
     Indication: Rectal neoplasm
     Dosage: 80 MG, QD
     Dates: start: 20240801
  2. STIVARGA [Suspect]
     Active Substance: REGORAFENIB MONOHYDRATE
     Indication: Metastases to peritoneum
     Dosage: 80 MG, QD
     Dates: start: 20241104, end: 20241108
  3. STIVARGA [Suspect]
     Active Substance: REGORAFENIB MONOHYDRATE
     Indication: Rectal neoplasm
     Dosage: 80 MG, QD
     Dates: end: 20241207
  4. PURAN [Concomitant]
     Active Substance: LEVOTHYROXINE SODIUM
     Dosage: UNK
  5. Folice [Concomitant]
     Dosage: 5 MG

REACTIONS (7)
  - Hypovolaemic shock [Fatal]
  - Intestinal haemorrhage [Fatal]
  - Colon cancer [Fatal]
  - Senile dementia [Fatal]
  - Ureteric obstruction [Recovered/Resolved]
  - Hospitalisation [None]
  - Incorrect dose administered [None]

NARRATIVE: CASE EVENT DATE: 20241104
